FAERS Safety Report 5663235-6 (Version None)
Quarter: 2008Q1

REPORT INFORMATION
  Report Type: 
  Country: None (occurrence: None)
  Receive Date: 20080310
  Receipt Date: 20080229
  Transmission Date: 20080703
  Serious: Yes (Death, Hospitalization)
  Sender: FDA-Public Use
  Company Number: 2008AL001260

PATIENT
  Age: 72 Year
  Sex: Male

DRUGS (4)
  1. PROPRANOLOL HCL EXTENDED-RELEASE CAPSULES USP, 60MG (AELLC) (PROPRANOL [Suspect]
     Dosage: 20 MG; Q6H
  2. PROPYLTHIOURACIL [Concomitant]
  3. HYDROCORTISONE [Concomitant]
  4. CEFTRIAXONE [Concomitant]

REACTIONS (11)
  - ATRIAL FIBRILLATION [None]
  - CARDIAC ARREST [None]
  - CONFUSIONAL STATE [None]
  - COUGH [None]
  - DIARRHOEA [None]
  - MUSCULAR WEAKNESS [None]
  - PYREXIA [None]
  - RESTLESSNESS [None]
  - SINUS BRADYCARDIA [None]
  - THYROTOXIC CRISIS [None]
  - TRICUSPID VALVE INCOMPETENCE [None]
